FAERS Safety Report 4278208-8 (Version None)
Quarter: 2004Q1

REPORT INFORMATION
  Report Type: 
  Country: None (occurrence: None)
  Receive Date: 20040121
  Receipt Date: 20040113
  Transmission Date: 20041129
  Serious: Yes (Hospitalization)
  Sender: FDA-Public Use
  Company Number: 2003-12-0885

PATIENT
  Age: 62 Year
  Sex: Male

DRUGS (5)
  1. REBETOL [Suspect]
     Indication: HEPATITIS C
     Dosage: 800 MG QD ORAL
     Route: 048
     Dates: start: 20030127, end: 20030701
  2. INTRON A [Suspect]
     Indication: HEPATITIS C
     Dosage: 10 MU TIW INTRAMUSCULAR
     Route: 030
     Dates: start: 20030127, end: 20030701
  3. URSO [Concomitant]
  4. FAMOTIDINE [Concomitant]
  5. SELBEX [Concomitant]

REACTIONS (4)
  - BLOOD LACTATE DEHYDROGENASE INCREASED [None]
  - INJECTION SITE INDURATION [None]
  - INJECTION SITE NECROSIS [None]
  - INJECTION SITE ULCER [None]
